FAERS Safety Report 8881220 (Version 1)
Quarter: 2012Q4

REPORT INFORMATION
  Report Type: 
  Country: US (occurrence: US)
  Receive Date: 20121031
  Receipt Date: 20121031
  Transmission Date: 20130627
  Serious: Yes (Hospitalization)
  Sender: FDA-Public Use
  Company Number: PHEH2012US020632

PATIENT
  Sex: Male

DRUGS (3)
  1. ARCAPTA [Suspect]
     Dates: start: 20121001
  2. LIPITOR [Concomitant]
  3. CITALOPRAM [Concomitant]

REACTIONS (4)
  - Brain oedema [Unknown]
  - Pericarditis [Unknown]
  - Pulmonary oedema [Unknown]
  - Ascites [Unknown]
